FAERS Safety Report 25375017 (Version 1)
Quarter: 2025Q2

REPORT INFORMATION
  Report Type: Spontaneous
  Country: US (occurrence: US)
  Receive Date: 20250529
  Receipt Date: 20250529
  Transmission Date: 20250717
  Serious: No
  Sender: BRISTOL-MYERS SQUIBB COMPANY
  Company Number: US-BRISTOL-MYERS SQUIBB COMPANY-2025-077283

PATIENT
  Age: 74 Year
  Sex: Female
  Weight: 74.6 kg

DRUGS (5)
  1. NULOJIX [Suspect]
     Active Substance: BELATACEPT
     Indication: Renal transplant
     Dosage: THERAPY END DATE: 03-APR-2025
     Route: 042
     Dates: start: 2022
  2. NULOJIX [Suspect]
     Active Substance: BELATACEPT
     Indication: Thrombotic microangiopathy
  3. EVEROLIMUS [Concomitant]
     Active Substance: EVEROLIMUS
     Indication: Product used for unknown indication
  4. EVEROLIMUS [Concomitant]
     Active Substance: EVEROLIMUS
  5. MYCOPHENOLIC ACID [Concomitant]
     Active Substance: MYCOPHENOLIC ACID
     Indication: Product used for unknown indication
     Dosage: DELAYED RELEASE

REACTIONS (1)
  - Adverse drug reaction [Unknown]
